FAERS Safety Report 18868965 (Version 1)
Quarter: 2021Q1

REPORT INFORMATION
  Report Type: Spontaneous
  Country: JP (occurrence: JP)
  Receive Date: 20210210
  Receipt Date: 20210210
  Transmission Date: 20210420
  Serious: Yes (Hospitalization, Other)
  Sender: FDA-Public Use
  Company Number: JP-009507513-1812JPN000987J

PATIENT
  Age: 63 Year
  Sex: Male

DRUGS (1)
  1. KEYTRUDA [Suspect]
     Active Substance: PEMBROLIZUMAB
     Indication: LUNG ADENOCARCINOMA STAGE IV
     Dosage: 200 MILLIGRAM, Q3W
     Route: 041
     Dates: start: 20170714, end: 2018

REACTIONS (4)
  - Hypothyroidism [Unknown]
  - Skin toxicity [Recovering/Resolving]
  - Adrenocortical insufficiency acute [Recovered/Resolved]
  - Prerenal failure [Recovering/Resolving]

NARRATIVE: CASE EVENT DATE: 20180529
